FAERS Safety Report 5769323-8 (Version None)
Quarter: 2008Q2

REPORT INFORMATION
  Report Type: 
  Country: None (occurrence: None)
  Receive Date: 20080610
  Receipt Date: 20080603
  Transmission Date: 20081010
  Serious: Yes (Death)
  Sender: FDA-Public Use
  Company Number: 163-21880-08041990

PATIENT
  Age: 63 Year
  Sex: Male

DRUGS (10)
  1. REVLIMID [Suspect]
     Indication: MULTIPLE MYELOMA
     Dosage: 10 MG, DAILY, ORAL, 25-10MG, DAILY, ORAL
     Route: 048
     Dates: start: 20060728, end: 20070401
  2. REVLIMID [Suspect]
     Indication: MULTIPLE MYELOMA
     Dosage: 10 MG, DAILY, ORAL, 25-10MG, DAILY, ORAL
     Route: 048
     Dates: start: 20070427, end: 20070521
  3. PREVACID [Concomitant]
  4. DOCUSATE SODIUM (DOCUSATE SODIUM) [Concomitant]
  5. AMBIEN [Concomitant]
  6. OXYCODONE HCL [Concomitant]
  7. SENOKOT [Concomitant]
  8. NEUPOGEN [Concomitant]
  9. ZOMETA [Concomitant]
  10. ARANESP [Concomitant]

REACTIONS (9)
  - BLOOD CREATININE INCREASED [None]
  - DEEP VEIN THROMBOSIS [None]
  - DISEASE PROGRESSION [None]
  - MULTIPLE MYELOMA [None]
  - NEUROPATHY PERIPHERAL [None]
  - NEUTROPENIA [None]
  - PEPTIC ULCER HAEMORRHAGE [None]
  - PNEUMONIA [None]
  - PULMONARY EMBOLISM [None]
